FAERS Safety Report 8022885-2 (Version None)
Quarter: 2011Q4

REPORT INFORMATION
  Report Type: 
  Country: None (occurrence: None)
  Receive Date: 20111230
  Receipt Date: 20111217
  Transmission Date: 20120403
  Serious: Yes (Hospitalization)
  Sender: FDA-Public Use
  Company Number: 2011AP003097

PATIENT
  Age: 40 Year
  Sex: Male

DRUGS (6)
  1. SIROLIMUS [Suspect]
     Indication: RENAL TRANSPLANT
  2. SIROLIMUS [Suspect]
     Indication: IMMUNOSUPPRESSION
  3. PREDNISONE TAB [Suspect]
     Indication: RENAL TRANSPLANT
  4. PREDNISONE TAB [Suspect]
     Indication: IMMUNOSUPPRESSION
  5. MYCOPHENOLATE MOFETIL [Suspect]
     Indication: IMMUNOSUPPRESSION
  6. MYCOPHENOLATE MOFETIL [Suspect]
     Indication: RENAL TRANSPLANT

REACTIONS (3)
  - HYPOXIA [None]
  - DYSPNOEA [None]
  - ALVEOLAR PROTEINOSIS [None]
